FAERS Safety Report 8483192-7 (Version None)
Quarter: 2012Q3

REPORT INFORMATION
  Report Type: 
  Country: None (occurrence: None)
  Receive Date: 20120702
  Receipt Date: 20120622
  Transmission Date: 20120928
  Serious: Yes (Hospitalization, Other)
  Sender: FDA-Public Use
  Company Number: US-ABBOTT-12P-163-0949120-00

PATIENT
  Sex: Female

DRUGS (7)
  1. HUMIRA [Suspect]
     Dates: end: 20120501
  2. HUMIRA [Suspect]
     Dates: start: 20120623
  3. POTASSIUM [Concomitant]
     Indication: PRODUCT USED FOR UNKNOWN INDICATION
  4. HUMIRA [Suspect]
     Indication: CROHN'S DISEASE
     Dosage: LOADING DOSE, ONE TIME DOSE
     Route: 058
     Dates: start: 20120301, end: 20120301
  5. ZOLOFT [Concomitant]
     Indication: PRODUCT USED FOR UNKNOWN INDICATION
  6. HUMIRA [Suspect]
     Dosage: DAY 15, 1 IN 1 DAY, ONE TIME DOSE
     Route: 058
     Dates: start: 20120301, end: 20120301
  7. HUMIRA [Suspect]

REACTIONS (3)
  - MALAISE [None]
  - CROHN'S DISEASE [None]
  - HOSPITALISATION [None]
